FAERS Safety Report 7746414-3 (Version None)
Quarter: 2011Q3

REPORT INFORMATION
  Report Type: 
  Country: None (occurrence: None)
  Receive Date: 20110913
  Receipt Date: 20110913
  Transmission Date: 20111222
  Serious: Yes (Other)
  Sender: FDA-Public Use
  Company Number: None

PATIENT
  Age: 24 Year
  Sex: Male
  Weight: 63.502 kg

DRUGS (1)
  1. PROPECIA [Suspect]
     Indication: ALOPECIA
     Dosage: 1 MG
     Route: 048
     Dates: start: 20090401, end: 20110501

REACTIONS (17)
  - PENIS DISORDER [None]
  - TESTICULAR ATROPHY [None]
  - DEPRESSION [None]
  - QUALITY OF LIFE DECREASED [None]
  - DISCOMFORT [None]
  - MEMORY IMPAIRMENT [None]
  - MOTOR DYSFUNCTION [None]
  - PENILE SIZE REDUCED [None]
  - ERECTILE DYSFUNCTION [None]
  - MUSCLE SPASMS [None]
  - LIBIDO DECREASED [None]
  - DISTURBANCE IN ATTENTION [None]
  - ORGASMIC SENSATION DECREASED [None]
  - FATIGUE [None]
  - MENTAL IMPAIRMENT [None]
  - ASTHENIA [None]
  - SEMEN VISCOSITY ABNORMAL [None]
